FAERS Safety Report 21374940 (Version 1)
Quarter: 2022Q3

REPORT INFORMATION
  Report Type: Spontaneous
  Country: US (occurrence: None)
  Receive Date: 20220923
  Receipt Date: 20220923
  Transmission Date: 20221027
  Serious: Yes (Other)
  Sender: FDA-Public Use
  Company Number: None

PATIENT
  Age: 18 Year
  Sex: Male
  Weight: 93 kg

DRUGS (1)
  1. KYMRIAH [Suspect]
     Active Substance: TISAGENLECLEUCEL
     Indication: B-cell small lymphocytic lymphoma
     Dosage: FREQUENCY : ONCE;?
     Route: 042
     Dates: start: 20220303, end: 20220303

REACTIONS (13)
  - Pyrexia [None]
  - Blood culture positive [None]
  - Hypotension [None]
  - Tachycardia [None]
  - Hypervolaemia [None]
  - Blood creatinine increased [None]
  - Pneumonia fungal [None]
  - Respiratory failure [None]
  - Conjunctival haemorrhage [None]
  - International normalised ratio increased [None]
  - Serum ferritin increased [None]
  - Coagulopathy [None]
  - Fibrin D dimer decreased [None]

NARRATIVE: CASE EVENT DATE: 20220311
